FAERS Safety Report 10170793 (Version 4)
Quarter: 2014Q2

REPORT INFORMATION
  Report Type: Spontaneous
  Country: JP (occurrence: JP)
  Receive Date: 20140514
  Receipt Date: 20140529
  Transmission Date: 20141212
  Serious: Yes (Hospitalization, Other)
  Sender: FDA-Public Use
  Company Number: JP-PFIZER INC-2014128208

PATIENT
  Age: 61 Year
  Sex: Female
  Weight: 42.2 kg

DRUGS (1)
  1. LYRICA [Suspect]
     Indication: PAIN IN EXTREMITY
     Dosage: 75 MG, 2X/DAY
     Route: 048
     Dates: start: 20120502, end: 20140507

REACTIONS (7)
  - Renal impairment [Recovering/Resolving]
  - Hyperuricaemia [Recovering/Resolving]
  - Vomiting [Recovered/Resolved]
  - Blood creatine phosphokinase increased [Recovered/Resolved]
  - Gastrooesophageal reflux disease [Recovering/Resolving]
  - Duodenal ulcer [Recovering/Resolving]
  - Nausea [Recovered/Resolved]
